FAERS Safety Report 9697803 (Version 1)
Quarter: 2013Q4

REPORT INFORMATION
  Report Type: Spontaneous
  Country: US (occurrence: US)
  Receive Date: 20131120
  Receipt Date: 20131120
  Transmission Date: 20140711
  Serious: No
  Sender: FDA-Public Use
  Company Number: US-PFIZER INC-2013330690

PATIENT
  Age: 55 Year
  Sex: Female
  Weight: 58.96 kg

DRUGS (2)
  1. GABAPENTIN [Suspect]
     Indication: MIGRAINE
     Dosage: UNK
     Dates: start: 2013
  2. LYRICA [Suspect]
     Indication: MIGRAINE
     Dosage: 100 MG, 3X/DAY
     Dates: end: 201310

REACTIONS (3)
  - Off label use [Unknown]
  - Drug withdrawal syndrome [Unknown]
  - Nasopharyngitis [Not Recovered/Not Resolved]
